FAERS Safety Report 7582446-6 (Version None)
Quarter: 2011Q2

REPORT INFORMATION
  Report Type: 
  Country: None (occurrence: None)
  Receive Date: 20110630
  Receipt Date: 20110623
  Transmission Date: 20111010
  Serious: Yes (Other)
  Sender: FDA-Public Use
  Company Number: US-PFIZER INC-2011140735

PATIENT
  Sex: Male
  Weight: 73.923 kg

DRUGS (14)
  1. ZYRTEC [Concomitant]
     Dosage: 40 MG, UNK
  2. WARFARIN [Concomitant]
     Dosage: 5 MG, UNK
  3. ACYCLOVIR [Concomitant]
     Dosage: UNK
  4. CLONAZEPAM [Concomitant]
     Dosage: UNK
  5. LIPITOR [Suspect]
     Indication: BLOOD CHOLESTEROL INCREASED
     Dosage: 5 MG, 1X/DAY
     Route: 048
  6. LIPITOR [Suspect]
     Dosage: 80 MG, 1X/DAY
     Route: 048
  7. OMEPRAZOLE [Concomitant]
     Dosage: UNK
  8. TESTOSTERONE [Concomitant]
     Dosage: UNK
  9. DIGOXIN [Concomitant]
     Dosage: UNK
  10. SIMVASTATIN [Suspect]
  11. XALATAN [Concomitant]
     Dosage: UNK
  12. AMBIEN [Concomitant]
     Dosage: UNK, AS NEEDED
  13. VERAPAMIL [Concomitant]
     Dosage: UNK
  14. CYCLOSPORINE [Concomitant]
     Dosage: UNK

REACTIONS (5)
  - BLOOD CREATINE PHOSPHOKINASE INCREASED [None]
  - ASPARTATE AMINOTRANSFERASE DECREASED [None]
  - RHEUMATOID FACTOR INCREASED [None]
  - MUSCLE ENZYME INCREASED [None]
  - ASPARTATE AMINOTRANSFERASE INCREASED [None]
